FAERS Safety Report 8200017-5 (Version None)
Quarter: 2012Q1

REPORT INFORMATION
  Report Type: 
  Country: None (occurrence: None)
  Receive Date: 20120312
  Receipt Date: 20120309
  Transmission Date: 20120608
  Serious: No
  Sender: FDA-Public Use
  Company Number: US-PFIZER INC-2012063549

PATIENT
  Sex: Female
  Weight: 77.098 kg

DRUGS (6)
  1. CHANTIX [Suspect]
     Indication: SMOKING CESSATION THERAPY
     Dosage: 0.5 MG, 1X/DAY
     Route: 048
     Dates: start: 20120305
  2. ASPIRIN [Concomitant]
     Dosage: UNK, 1X/DAY
  3. VITAMIN D [Concomitant]
     Dosage: UNK
  4. PROAIR HFA [Concomitant]
     Dosage: UNK
     Route: 055
  5. SYMBICORT [Concomitant]
     Dosage: UNK
     Route: 055
  6. FLUOXETINE [Concomitant]
     Dosage: UNK

REACTIONS (1)
  - STRESS [None]
